FAERS Safety Report 14439675 (Version 1)
Quarter: 2018Q1

REPORT INFORMATION
  Report Type: Spontaneous
  Country: FR (occurrence: FR)
  Receive Date: 20180125
  Receipt Date: 20180125
  Transmission Date: 20180509
  Serious: Yes (Hospitalization)
  Sender: FDA-Public Use
  Company Number: FR-TEVA-2018-FR-848859

PATIENT
  Age: 80 Year
  Sex: Female

DRUGS (7)
  1. TEMESTA (LORAZEPAM) [Concomitant]
     Active Substance: LORAZEPAM
     Indication: ANXIETY
     Route: 048
  2. XYZALL 5 MG, COMPRIM? PELLICUL? [Concomitant]
     Indication: RHINITIS ALLERGIC
     Route: 048
  3. FLIXOTIDE [Concomitant]
     Active Substance: FLUTICASONE PROPIONATE
     Indication: ASTHMA
     Route: 055
  4. AMLOR 10 MG, G?LULE [Concomitant]
     Indication: HYPERTENSION
     Route: 048
  5. MOPRAL [Concomitant]
     Active Substance: OMEPRAZOLE
     Indication: DUODENAL ULCER
     Route: 048
  6. SINGULAIR 10 MG, COMPRIM? PELLICUL? [Concomitant]
     Indication: ASTHMA
     Route: 048
  7. TRAMADOL (CHLORHYDRATE DE) [Suspect]
     Active Substance: TRAMADOL HYDROCHLORIDE
     Indication: PAIN
     Route: 048
     Dates: start: 20170901, end: 20170905

REACTIONS (2)
  - Balance disorder [Not Recovered/Not Resolved]
  - Fatigue [Not Recovered/Not Resolved]

NARRATIVE: CASE EVENT DATE: 20170904
